FAERS Safety Report 19801938 (Version 1)
Quarter: 2021Q3

REPORT INFORMATION
  Report Type: Report from Study
  Country: US (occurrence: US)
  Receive Date: 20210908
  Receipt Date: 20210908
  Transmission Date: 20211014
  Serious: Yes (Other)
  Sender: FDA-Public Use
  Company Number: US-BIOVITRUM-2021US8020

PATIENT
  Sex: Male

DRUGS (1)
  1. KINERET [Suspect]
     Active Substance: ANAKINRA
     Indication: RHEUMATOID ARTHRITIS
     Dosage: PACKAGING SIZE 7
     Route: 058
     Dates: start: 20210812

REACTIONS (3)
  - Drug ineffective [Unknown]
  - Arthritis infective [Unknown]
  - Joint swelling [Unknown]
